FAERS Safety Report 5832489-5 (Version None)
Quarter: 2008Q3

REPORT INFORMATION
  Report Type: 
  Country: None (occurrence: None)
  Receive Date: 20080731
  Receipt Date: 20080716
  Transmission Date: 20090109
  Serious: Yes (Death, Life-Threatening, Hospitalization, Other)
  Sender: FDA-Public Use
  Company Number: RENA-1000156

PATIENT
  Age: 61 Year
  Sex: Male
  Weight: 94.5 kg

DRUGS (16)
  1. RENAGEL [Suspect]
     Indication: HYPERPHOSPHATAEMIA
     Dosage: 6 , QD, ORAL
     Route: 048
     Dates: start: 20071009, end: 20080128
  2. VESDIL (RAMIPRIL) [Concomitant]
  3. METOPROLOL TARTRATE [Concomitant]
  4. DREISAVIT (ASCORBIC ACID, CALCIUM PANTOTHENATE, FOLIC ACID, NICOTINAMI [Concomitant]
  5. ONE-ALPHA (ALFACALCIDOL) [Concomitant]
  6. BICANORM (SODIUM CARBONATE ANHYDROUS) [Concomitant]
  7. ANTI-PHOSPHAT (ALUMINIUM HYDROXIDE) [Concomitant]
  8. FENISTIL (DIMETINDENE MALEATE) [Concomitant]
  9. VIGANTOLETTEN (COLECALCIFEROL) [Concomitant]
  10. ERYPO (EPOETIN ALFA) [Concomitant]
  11. HEPARIN [Concomitant]
  12. CEFACLOR [Concomitant]
  13. NEXIUM (ESOMEPRAZOLE SODIUM) [Concomitant]
  14. METOPROLOL SUCCINATE [Concomitant]
  15. PRAVASTATIN [Concomitant]
  16. PHOS-EX (CALCIUM ACETATE) [Concomitant]

REACTIONS (16)
  - ANAL HAEMORRHAGE [None]
  - ARTERIAL HAEMORRHAGE [None]
  - ASTHENIA [None]
  - CATHETER SITE HAEMORRHAGE [None]
  - DISSEMINATED INTRAVASCULAR COAGULATION [None]
  - EPISTAXIS [None]
  - GASTROINTESTINAL HAEMORRHAGE [None]
  - GENERAL PHYSICAL HEALTH DETERIORATION [None]
  - HAEMOGLOBIN DECREASED [None]
  - HAEMORRHAGE [None]
  - HAEMORRHAGE SUBCUTANEOUS [None]
  - HYPERKALAEMIA [None]
  - HYPOVOLAEMIC SHOCK [None]
  - PERITONEAL HAEMATOMA [None]
  - RETROPERITONEAL HAEMATOMA [None]
  - SCIATICA [None]
